FAERS Safety Report 14593618 (Version 1)
Quarter: 2018Q1

REPORT INFORMATION
  Report Type: Report from Study
  Country: US (occurrence: US)
  Receive Date: 20180302
  Receipt Date: 20180302
  Transmission Date: 20180509
  Serious: Yes (Other)
  Sender: FDA-Public Use
  Company Number: US-BAYER-2018-020347

PATIENT
  Age: 77 Year
  Sex: Male

DRUGS (1)
  1. NEXAVAR [Suspect]
     Active Substance: SORAFENIB
     Indication: HEPATOCELLULAR CARCINOMA
     Dosage: 400 MG, BID
     Route: 048
     Dates: start: 20180124, end: 201802

REACTIONS (8)
  - Blood pressure increased [None]
  - Asthenia [None]
  - Abdominal distension [None]
  - Fatigue [None]
  - Haemorrhoids [None]
  - Thrombocytopenia [None]
  - Drug ineffective [None]
  - Decreased appetite [None]

NARRATIVE: CASE EVENT DATE: 201801
